FAERS Safety Report 9861235 (Version 1)
Quarter: 2014Q1

REPORT INFORMATION
  Report Type: Spontaneous
  Country: BR (occurrence: BR)
  Receive Date: 20140202
  Receipt Date: 20140202
  Transmission Date: 20141002
  Serious: No
  Sender: FDA-Public Use
  Company Number: BR-ALLERGAN-1304125US

PATIENT
  Age: 68 Year
  Sex: Female
  Weight: 90 kg

DRUGS (3)
  1. BOTOX [Suspect]
     Indication: SKIN WRINKLING
     Dosage: 30 UNITS, UNK
     Route: 030
     Dates: start: 20130312, end: 20130312
  2. BOTOX [Suspect]
     Indication: SKIN WRINKLING
  3. BOTOX [Suspect]
     Indication: SKIN WRINKLING

REACTIONS (1)
  - Eyelid ptosis [Not Recovered/Not Resolved]
